FAERS Safety Report 21085586 (Version 7)
Quarter: 2024Q2

REPORT INFORMATION
  Report Type: Spontaneous
  Country: IT (occurrence: IT)
  Receive Date: 20220715
  Receipt Date: 20240607
  Transmission Date: 20240715
  Serious: Yes (Other)
  Sender: FDA-Public Use
  Company Number: IT-CELLTRION INC.-2022IT010793

PATIENT

DRUGS (14)
  1. ADALIMUMAB [Suspect]
     Active Substance: ADALIMUMAB\ISOPROPYL ALCOHOL
     Indication: Psoriatic arthropathy
     Dosage: UNK
  2. ADALIMUMAB [Suspect]
     Active Substance: ADALIMUMAB\ISOPROPYL ALCOHOL
     Indication: Iridocyclitis
     Dosage: UNK
  3. ADALIMUMAB [Suspect]
     Active Substance: ADALIMUMAB\ISOPROPYL ALCOHOL
     Indication: Psoriatic arthropathy
     Dosage: UNK
  4. INFLIXIMAB [Suspect]
     Active Substance: INFLIXIMAB
     Indication: Psoriatic arthropathy
     Dosage: UNK
  5. INFLIXIMAB [Suspect]
     Active Substance: INFLIXIMAB
     Indication: Iridocyclitis
  6. METHOTREXATE SODIUM [Suspect]
     Active Substance: METHOTREXATE SODIUM
     Indication: Psoriatic arthropathy
     Dosage: UNK
  7. LEFLUNOMIDE [Suspect]
     Active Substance: LEFLUNOMIDE
     Indication: Psoriatic arthropathy
     Dosage: UNK
  8. CYCLOSPORINE [Suspect]
     Active Substance: CYCLOSPORINE
     Indication: Psoriatic arthropathy
     Dosage: UNK
  9. GOLIMUMAB [Suspect]
     Active Substance: GOLIMUMAB
     Indication: Psoriatic arthropathy
     Dosage: BATCH AND LOT TESTED AND FOUND WITHIN SPECIFICATIONS
  10. GOLIMUMAB [Suspect]
     Active Substance: GOLIMUMAB
     Dosage: UNK
  11. SECUKINUMAB [Suspect]
     Active Substance: SECUKINUMAB
     Indication: Psoriatic arthropathy
     Dosage: UNK
  12. SULFASALAZINE [Suspect]
     Active Substance: SULFASALAZINE
     Indication: Psoriatic arthropathy
     Dosage: UNK
  13. SULFASALAZINE [Suspect]
     Active Substance: SULFASALAZINE
     Dosage: MODIFIED-RELEASE TABLET
  14. CYCLOSPORINE [Suspect]
     Active Substance: CYCLOSPORINE
     Indication: Product used for unknown indication
     Dosage: UNK

REACTIONS (6)
  - Oral lichen planus [Recovered/Resolved]
  - Psoriatic arthropathy [Recovered/Resolved]
  - Impaired work ability [Recovering/Resolving]
  - Drug ineffective [Unknown]
  - Therapeutic product effect decreased [Unknown]
  - Intentional product use issue [Unknown]
